FAERS Safety Report 6107576-7 (Version None)
Quarter: 2009Q1

REPORT INFORMATION
  Report Type: 
  Country: None (occurrence: None)
  Receive Date: 20090309
  Receipt Date: 20090304
  Transmission Date: 20090719
  Serious: Yes (Death)
  Sender: FDA-Public Use
  Company Number: SG-BRISTOL-MYERS SQUIBB COMPANY-14410252

PATIENT
  Age: 48 Year
  Sex: Male

DRUGS (3)
  1. DASATINIB [Suspect]
     Indication: CHRONIC MYELOID LEUKAEMIA
     Dosage: 140 MG; JUN-2008 DECREASED TO 100 MG
     Route: 048
     Dates: start: 20080703
  2. FUROSEMIDE [Concomitant]
     Dates: start: 20080908
  3. DEXAMETHASONE [Concomitant]
     Dates: start: 20080908

REACTIONS (2)
  - CIRCULATORY COLLAPSE [None]
  - MALIGNANT NEOPLASM PROGRESSION [None]
